FAERS Safety Report 6949041-0 (Version None)
Quarter: 2010Q3

REPORT INFORMATION
  Report Type: 
  Country: None (occurrence: None)
  Receive Date: 20100828
  Receipt Date: 20091202
  Transmission Date: 20110219
  Serious: No
  Sender: FDA-Public Use
  Company Number: US-ABBOTT-09P-163-0612882-00

PATIENT
  Sex: Female
  Weight: 107.14 kg

DRUGS (6)
  1. NIASPAN [Suspect]
     Indication: HIGH DENSITY LIPOPROTEIN DECREASED
     Route: 048
     Dates: start: 20091201
  2. NIASPAN [Suspect]
     Route: 048
     Dates: start: 20091001, end: 20091201
  3. MULTI-VITAMIN [Concomitant]
     Indication: VITAMIN SUPPLEMENTATION
     Route: 048
     Dates: start: 20091201
  4. MULTI-VITAMIN [Concomitant]
     Route: 048
  5. FISH OIL [Concomitant]
     Indication: MEDICAL DIET
     Dosage: TWO FOR A YEAR
     Route: 048
     Dates: start: 20091201
  6. FISH OIL [Concomitant]
     Route: 048
     Dates: end: 20091101

REACTIONS (2)
  - RASH [None]
  - URTICARIA [None]
